FAERS Safety Report 4603157-2 (Version None)
Quarter: 2005Q1

REPORT INFORMATION
  Report Type: 
  Country: None (occurrence: None)
  Receive Date: 20050308
  Receipt Date: 20050222
  Transmission Date: 20050727
  Serious: Yes (Hospitalization)
  Sender: FDA-Public Use
  Company Number: IBF20050009

PATIENT
  Age: 19 Month
  Sex: Female

DRUGS (1)
  1. IBUPROFEN [Suspect]
     Dosage: PO
     Route: 048
     Dates: start: 20030101, end: 20030101

REACTIONS (4)
  - HYPOTHERMIA [None]
  - IDIOSYNCRATIC DRUG REACTION [None]
  - LETHARGY [None]
  - SINUS BRADYCARDIA [None]
